FAERS Safety Report 9676148 (Version 1)
Quarter: 2013Q4

REPORT INFORMATION
  Report Type: Spontaneous
  Country: TR (occurrence: TR)
  Receive Date: 20131107
  Receipt Date: 20131107
  Transmission Date: 20140711
  Serious: Yes (Hospitalization, Other)
  Sender: FDA-Public Use
  Company Number: TR-ACTAVIS-2013-19776

PATIENT
  Age: 30 Year
  Sex: Female

DRUGS (1)
  1. PROPYLTHIOURACIL (AELLC) [Suspect]
     Indication: TOXIC NODULAR GOITRE
     Dosage: 150-300 MG, DAILY
     Route: 065

REACTIONS (2)
  - Renal failure chronic [Recovered/Resolved]
  - Uraemic encephalopathy [Unknown]
